FAERS Safety Report 9055359 (Version 2)
Quarter: 2013Q1

REPORT INFORMATION
  Report Type: Report from Study
  Country: DE (occurrence: DE)
  Receive Date: 20130206
  Receipt Date: 20130212
  Transmission Date: 20140127
  Serious: Yes (Hospitalization)
  Sender: FDA-Public Use
  Company Number: DE-ROCHE-1186775

PATIENT
  Sex: Female
  Weight: 83.9 kg

DRUGS (11)
  1. BEVACIZUMAB [Suspect]
     Indication: BREAST CANCER
     Route: 042
     Dates: start: 20121128, end: 20121212
  2. BEVACIZUMAB [Suspect]
     Route: 042
     Dates: end: 20120125
  3. PACLITAXEL [Suspect]
     Indication: BREAST CANCER
     Route: 042
     Dates: start: 20121128, end: 20121212
  4. PACLITAXEL [Suspect]
     Route: 042
     Dates: end: 20130125
  5. DEXAMETHASON [Concomitant]
     Indication: NAUSEA
     Route: 042
     Dates: start: 20121128, end: 20121212
  6. RANITIDIN [Concomitant]
     Indication: PROPHYLAXIS AGAINST GASTROINTESTINAL ULCER
     Route: 042
     Dates: start: 20121128, end: 20121212
  7. TAVEGIL [Concomitant]
     Indication: HYPERSENSITIVITY
     Route: 042
     Dates: start: 20121128, end: 20121212
  8. SIMVA [Concomitant]
     Indication: HYPERTENSION
     Route: 048
  9. RAMIPRIL [Concomitant]
     Indication: HYPERTENSION
     Route: 048
  10. BUDESONIDE [Concomitant]
     Indication: ASTHMA
     Route: 045
  11. ASS [Concomitant]
     Route: 048

REACTIONS (7)
  - Circulatory collapse [Recovered/Resolved]
  - Hypokalaemia [Recovered/Resolved]
  - Anaemia [Recovered/Resolved]
  - Visual impairment [Recovered/Resolved]
  - Malaise [Recovered/Resolved]
  - Intestinal perforation [Not Recovered/Not Resolved]
  - Diverticulitis [Not Recovered/Not Resolved]
